FAERS Safety Report 11301073 (Version 1)
Quarter: 2015Q3

REPORT INFORMATION
  Report Type: Spontaneous
  Country: US (occurrence: US)
  Receive Date: 20150722
  Receipt Date: 20150722
  Transmission Date: 20151125
  Serious: No
  Sender: FDA-Public Use
  Company Number: US-ELI_LILLY_AND_COMPANY-US201404009761

PATIENT
  Sex: Female

DRUGS (8)
  1. MICARDIS [Concomitant]
     Active Substance: TELMISARTAN
     Dosage: 40 MG, UNK
     Route: 065
  2. ASA [Concomitant]
     Active Substance: ASPIRIN
     Dosage: 325 MG, UNK
     Route: 065
  3. FISH OIL [Concomitant]
     Active Substance: FISH OIL
  4. FLAXSEED [Concomitant]
     Active Substance: FLAX SEED
     Dosage: 2 DF, QD
     Route: 065
  5. EFFIENT [Suspect]
     Active Substance: PRASUGREL HYDROCHLORIDE
     Indication: STENT PLACEMENT
     Dosage: 10 MG, QD
     Route: 065
     Dates: start: 20140329
  6. CRESTOR [Concomitant]
     Active Substance: ROSUVASTATIN CALCIUM
     Dosage: 40 MG, UNK
     Route: 065
  7. CO-Q10 [Concomitant]
     Dosage: 200 MG, UNK
     Route: 065
  8. VITAMIN D3 [Concomitant]
     Active Substance: CHOLECALCIFEROL
     Dosage: 3 DF, QD
     Route: 065

REACTIONS (7)
  - Diarrhoea [Unknown]
  - Aphonia [Recovering/Resolving]
  - Somnolence [Unknown]
  - Abdominal pain [Unknown]
  - Asthenia [Unknown]
  - Laryngitis [Recovering/Resolving]
  - Musculoskeletal pain [Not Recovered/Not Resolved]
